FAERS Safety Report 8397431-4 (Version None)
Quarter: 2012Q2

REPORT INFORMATION
  Report Type: 
  Country: None (occurrence: None)
  Receive Date: 20120531
  Receipt Date: 20120519
  Transmission Date: 20120825
  Serious: Yes (Hospitalization)
  Sender: FDA-Public Use
  Company Number: BE-PAR PHARMACEUTICAL, INC-2012SCPR004393

PATIENT

DRUGS (2)
  1. METRONIDAZOLE [Suspect]
     Indication: LIVER ABSCESS
     Dosage: 1.5 G, / DAY
     Route: 048
  2. CIPROFLOXACIN HCL [Concomitant]
     Indication: LIVER ABSCESS
     Dosage: 800 MG, / DAY
     Route: 048

REACTIONS (7)
  - PERIPHERAL SENSORIMOTOR NEUROPATHY [None]
  - CEREBRAL SMALL VESSEL ISCHAEMIC DISEASE [None]
  - NYSTAGMUS [None]
  - VITH NERVE DISORDER [None]
  - TOXIC ENCEPHALOPATHY [None]
  - CENTRAL NERVOUS SYSTEM LESION [None]
  - NERVOUS SYSTEM DISORDER [None]
